FAERS Safety Report 12179450 (Version 1)
Quarter: 2016Q1

REPORT INFORMATION
  Report Type: Spontaneous
  Country: US (occurrence: US)
  Receive Date: 20160314
  Receipt Date: 20160314
  Transmission Date: 20160526
  Serious: Yes (Other)
  Sender: FDA-Public Use
  Company Number: US-ARBOR PHARMACEUTICALS, LLC-US-2016ARB000194

PATIENT
  Age: 10 Year
  Sex: Male

DRUGS (1)
  1. EVEKEO [Suspect]
     Active Substance: AMPHETAMINE SULFATE
     Indication: PRODUCT USED FOR UNKNOWN INDICATION
     Dosage: UNK

REACTIONS (5)
  - Obsessive-compulsive disorder [Unknown]
  - Abnormal behaviour [Unknown]
  - Crying [Unknown]
  - Emotional disorder [Unknown]
  - Aggression [Unknown]
